FAERS Safety Report 12833574 (Version 3)
Quarter: 2017Q1

REPORT INFORMATION
  Report Type: Report from Study
  Country: JP (occurrence: JP)
  Receive Date: 20161010
  Receipt Date: 20170310
  Transmission Date: 20170428
  Serious: Yes (Death, Other)
  Sender: FDA-Public Use
  Company Number: JP-INCYTE CORPORATION-2015IN002754

PATIENT
  Age: 86 Year
  Sex: Male
  Weight: 44.7 kg

DRUGS (1)
  1. JAKAVI [Suspect]
     Active Substance: RUXOLITINIB
     Indication: MYELOFIBROSIS
     Dosage: 10 MG, BID
     Route: 048
     Dates: start: 20150320, end: 20150422

REACTIONS (6)
  - Renal impairment [Fatal]
  - Concomitant disease aggravated [Fatal]
  - Hypoxia [Fatal]
  - Bone marrow failure [Not Recovered/Not Resolved]
  - Drug ineffective [Unknown]
  - Pleural effusion [Fatal]

NARRATIVE: CASE EVENT DATE: 20150416
